FAERS Safety Report 7711806-5 (Version None)
Quarter: 2011Q3

REPORT INFORMATION
  Report Type: 
  Country: None (occurrence: None)
  Receive Date: 20110826
  Receipt Date: 20110815
  Transmission Date: 20111222
  Serious: Yes (Hospitalization, Other)
  Sender: FDA-Public Use
  Company Number: US-ASTELLAS-2011US004960

PATIENT
  Sex: Female
  Weight: 59 kg

DRUGS (4)
  1. AVASTIN [Suspect]
     Indication: NON-SMALL CELL LUNG CANCER
     Dosage: UNK
     Route: 065
     Dates: start: 20110101
  2. SYNTHROID [Concomitant]
     Indication: HYPOTHYROIDISM
     Dosage: 100 UG, UNKNOWN/D
     Route: 065
  3. SYNTHROID [Concomitant]
     Dosage: 125 UG, UNKNOWN/D
     Route: 065
  4. TARCEVA [Suspect]
     Indication: NON-SMALL CELL LUNG CANCER
     Dosage: 100 MG, UID/QD
     Route: 048

REACTIONS (7)
  - FLUID OVERLOAD [None]
  - ANGIOPATHY [None]
  - HYPOTHYROIDISM [None]
  - WEIGHT INCREASED [None]
  - WEIGHT DECREASED [None]
  - CARDIAC FAILURE ACUTE [None]
  - MYXOEDEMA [None]
